FAERS Safety Report 21304546 (Version 1)
Quarter: 2022Q3

REPORT INFORMATION
  Report Type: Spontaneous
  Country: US (occurrence: US)
  Receive Date: 20220907
  Receipt Date: 20220907
  Transmission Date: 20221027
  Serious: No
  Sender: FDA-Public Use
  Company Number: US-PERRIGO-21US030700

PATIENT

DRUGS (1)
  1. MINOXIDIL [Suspect]
     Active Substance: MINOXIDIL
     Indication: Product used for unknown indication
     Dosage: UNKNOWN, UNKNOWN
     Route: 061
     Dates: start: 202110

REACTIONS (6)
  - Hypersensitivity [Unknown]
  - Application site inflammation [Unknown]
  - Dandruff [Unknown]
  - Acne [Unknown]
  - Application site pruritus [Unknown]
  - Application site erythema [Unknown]

NARRATIVE: CASE EVENT DATE: 20211001
